FAERS Safety Report 6749658-2 (Version None)
Quarter: 2010Q2

REPORT INFORMATION
  Report Type: 
  Country: None (occurrence: None)
  Receive Date: 20100601
  Receipt Date: 20100525
  Transmission Date: 20101027
  Serious: Yes (Hospitalization)
  Sender: FDA-Public Use
  Company Number: B0657082A

PATIENT
  Age: 2 Year
  Sex: Male
  Weight: 10 kg

DRUGS (11)
  1. AUGMENTIN '125' [Suspect]
     Dosage: 150MGK PER DAY
     Route: 042
     Dates: start: 20100428, end: 20100430
  2. ZOVIRAX [Suspect]
     Dosage: 500MGM2 PER DAY
     Route: 042
     Dates: start: 20100428, end: 20100501
  3. ORBENIN CAP [Suspect]
     Dosage: 150MGK PER DAY
     Route: 042
     Dates: start: 20100430, end: 20100505
  4. GENTALLINE [Suspect]
     Dosage: 5MGK PER DAY
     Route: 042
     Dates: start: 20100428, end: 20100430
  5. ALBUMIN (HUMAN) [Suspect]
     Indication: DRUG USE FOR UNKNOWN INDICATION
     Dosage: 10G PER DAY
     Route: 042
     Dates: start: 20100429, end: 20100501
  6. PERFALGAN [Concomitant]
     Dosage: 100MG FOUR TIMES PER DAY
     Route: 042
     Dates: start: 20100428
  7. HYPNOVEL [Concomitant]
     Route: 042
     Dates: start: 20100428
  8. SUFENTA PRESERVATIVE FREE [Concomitant]
     Route: 042
     Dates: start: 20100428
  9. MOPRAL [Concomitant]
     Dosage: 1MGK PER DAY
     Route: 042
     Dates: start: 20100428
  10. VITAMIN A OINTMENT [Concomitant]
     Route: 047
  11. RIFAMYCINE [Concomitant]
     Route: 047

REACTIONS (3)
  - PYREXIA [None]
  - RASH MACULO-PAPULAR [None]
  - TOXIC SKIN ERUPTION [None]
